FAERS Safety Report 4563079-2 (Version None)
Quarter: 2005Q1

REPORT INFORMATION
  Report Type: 
  Country: None (occurrence: None)
  Receive Date: 20050125
  Receipt Date: 20050112
  Transmission Date: 20050727
  Serious: Yes (Life-Threatening, Hospitalization, Other)
  Sender: FDA-Public Use
  Company Number: HQWYE751603DEC04

PATIENT
  Age: 34 Year
  Sex: Female

DRUGS (8)
  1. NORGESTREL AND ETHINYL ESTRADIOL [Suspect]
     Indication: DYSMENORRHOEA
     Dosage: 1 TABLET 1X PER 1 DAY; ORAL
     Route: 048
     Dates: start: 20040720, end: 20040801
  2. ADONA (CARBAZOCHROME SODIUM SULFONATE, ) [Suspect]
     Indication: MENORRHAGIA
     Dosage: 90 MG DAILY; ORAL
     Route: 048
     Dates: start: 20040823, end: 20040830
  3. ANGE-28 (LEVONORGESTREL/ETHINYL ESTRADIOL./INERT, TABLET) [Suspect]
     Indication: DYSMENORRHOEA
     Dosage: 1 TABLET 1X PER DAY; ORAL
     Route: 048
     Dates: start: 20040819, end: 20040830
  4. NORGESTREL AND ETHINYL ESTRADIOL [Suspect]
     Indication: DYSMENORRHOEA
     Dosage: 1 TABLET 1X PER 1 DAY, ORAL
     Route: 048
     Dates: start: 20040802, end: 20040815
  5. TRANSAMIN (TRANEXAMIC ACID, ) [Suspect]
     Indication: MENORRHAGIA
     Dosage: 750 MG DAILY; ORAL
     Route: 048
     Dates: start: 20040823, end: 20040830
  6. TOKISYAKUYAKUSAN (HERBAL EXTRACTS NOS) [Concomitant]
  7. BLOPRESS (CANDESARTAN CILEXETIL) [Concomitant]
  8. LOXONIN (LOXOPROFEN SODIUM) [Concomitant]

REACTIONS (2)
  - PULMONARY INFARCTION [None]
  - VOMITING [None]
